FAERS Safety Report 20215317 (Version 2)
Quarter: 2021Q4

REPORT INFORMATION
  Report Type: Spontaneous
  Country: JP (occurrence: JP)
  Receive Date: 20211222
  Receipt Date: 20211229
  Transmission Date: 20220304
  Serious: Yes (Other)
  Sender: FDA-Public Use
  Company Number: JP-NBI-J202124011BIPI

PATIENT
  Age: 4 Decade
  Sex: Male

DRUGS (1)
  1. JARDIANCE [Suspect]
     Active Substance: EMPAGLIFLOZIN
     Indication: Product used for unknown indication
     Route: 065

REACTIONS (3)
  - Cerebral infarction [Unknown]
  - Cerebral infarction [Unknown]
  - Haematocrit increased [Unknown]
